FAERS Safety Report 5320033-0 (Version None)
Quarter: 2007Q2

REPORT INFORMATION
  Report Type: 
  Country: None (occurrence: None)
  Receive Date: 20070201
  Receipt Date: 20060320
  Transmission Date: 20071010
  Serious: Yes (Other)
  Sender: FDA-Public Use
  Company Number: USEN-6N3P3G-S001

PATIENT
  Sex: Female

DRUGS (1)
  1. DURAPREP [Suspect]
     Indication: PREOPERATIVE CARE
     Dosage: 26 ML TOPICAL   SINGLE APPLICATION
     Route: 061

REACTIONS (2)
  - SKIN IRRITATION [None]
  - SKIN LACERATION [None]
